FAERS Safety Report 16288389 (Version 1)
Quarter: 2019Q2

REPORT INFORMATION
  Report Type: Report from Study
  Country: IE (occurrence: IE)
  Receive Date: 20190508
  Receipt Date: 20190508
  Transmission Date: 20190711
  Serious: Yes (Hospitalization)
  Sender: FDA-Public Use
  Company Number: IE-BAXTER-2019BAX008829

PATIENT
  Age: 72 Year
  Sex: Male

DRUGS (4)
  1. SODIUM CHLORIDE 0.9% INTRAVENOUS INFUSION BP [Suspect]
     Active Substance: SODIUM CHLORIDE
     Indication: PRODUCT USED FOR UNKNOWN INDICATION
     Dosage: USED IN COMPOUNDING SOURCE B HEPARIN SODIUM 10 IU/ML
     Route: 065
  2. HEPARIN SODIUM BP 1000 IU/L IN 0.9% W/V SODIUM CHLORIDE IV INFUSION [Suspect]
     Active Substance: HEPARIN SODIUM\SODIUM CHLORIDE
     Indication: PRODUCT USED FOR UNKNOWN INDICATION
     Dosage: SOURCE B HEPARIN SODIUM 10 IU/ML
     Route: 065
  3. SODIUM CHLORIDE 0.9% INTRAVENOUS INFUSION BP [Suspect]
     Active Substance: SODIUM CHLORIDE
     Dosage: RECONSTITUTED MEROPENEM IN A BAXTER SALINE INTERMATE
     Route: 065
     Dates: start: 20190408
  4. MEROPENEM. [Suspect]
     Active Substance: MEROPENEM
     Indication: PRODUCT USED FOR UNKNOWN INDICATION
     Dosage: RECONSTITUTED MEROPENEM IN A BAXTER SALINE INTERMATE
     Route: 065
     Dates: start: 20190408

REACTIONS (2)
  - Body temperature abnormal [Recovering/Resolving]
  - Influenza like illness [Recovering/Resolving]

NARRATIVE: CASE EVENT DATE: 20190423
